FAERS Safety Report 7596220-8 (Version None)
Quarter: 2011Q3

REPORT INFORMATION
  Report Type: 
  Country: None (occurrence: None)
  Receive Date: 20110707
  Receipt Date: 20110628
  Transmission Date: 20111222
  Serious: Yes (Other)
  Sender: FDA-Public Use
  Company Number: NL-ABBOTT-11P-114-0834802-00

PATIENT
  Sex: Female
  Weight: 83 kg

DRUGS (4)
  1. FOLIC ACID [Concomitant]
     Indication: PSORIATIC ARTHROPATHY
     Dates: start: 20080826
  2. HUMIRA [Suspect]
     Indication: PSORIASIS
     Route: 058
     Dates: start: 20100505, end: 20110615
  3. METHOTREXATE [Concomitant]
     Indication: PSORIATIC ARTHROPATHY
     Dosage: CUMULATIVE DOSE } OR =  500 MG TO { 1.5 GM
     Dates: start: 20080826
  4. NAPROXEN [Concomitant]
     Indication: PSORIATIC ARTHROPATHY

REACTIONS (1)
  - SYSTEMIC LUPUS ERYTHEMATOSUS [None]
